FAERS Safety Report 6522100-2 (Version None)
Quarter: 2009Q4

REPORT INFORMATION
  Report Type: 
  Country: None (occurrence: None)
  Receive Date: 20091229
  Receipt Date: 20091229
  Transmission Date: 20100525
  Serious: Yes (Hospitalization)
  Sender: FDA-Public Use
  Company Number: None

PATIENT
  Sex: Female
  Weight: 61.2 kg

DRUGS (6)
  1. OXCARBAZEPINE [Suspect]
     Indication: BIPOLAR DISORDER
     Dosage: 600 MG Q AM + 1800 MG QHS
  2. ZIPRASIDONE HCL [Concomitant]
  3. JUNEL FE [Concomitant]
  4. CLONAZEPAM [Concomitant]
  5. METFORMIN [Concomitant]
  6. ESOMEPRAZOLE SODIUM (NEXIUM) [Concomitant]

REACTIONS (2)
  - HYPONATRAEMIA [None]
  - MANIA [None]
